FAERS Safety Report 16281037 (Version 2)
Quarter: 2019Q2

REPORT INFORMATION
  Report Type: Spontaneous
  Country: US (occurrence: US)
  Receive Date: 20190507
  Receipt Date: 20190528
  Transmission Date: 20190711
  Serious: Yes (Other)
  Sender: FDA-Public Use
  Company Number: US-GLENMARK PHARMACEUTICALS-2019GMK041107

PATIENT
  Age: 73 Year
  Sex: Male

DRUGS (1)
  1. ROPINIROLE HYDROCHLORIDE. [Suspect]
     Active Substance: ROPINIROLE HYDROCHLORIDE
     Indication: PARKINSON^S DISEASE
     Dosage: 0.5 MG, BID (EVERY 12 HOURS)
     Route: 065

REACTIONS (2)
  - Visual acuity reduced [Recovering/Resolving]
  - Corneal oedema [Recovering/Resolving]
